FAERS Safety Report 5008735-7 (Version None)
Quarter: 2006Q2

REPORT INFORMATION
  Report Type: 
  Country: None (occurrence: None)
  Receive Date: 20060517
  Receipt Date: 20060505
  Transmission Date: 20061013
  Serious: Yes (Hospitalization, Other)
  Sender: FDA-Public Use
  Company Number: 2006-DE-02249GD

PATIENT
  Age: 39 Year
  Sex: Male

DRUGS (4)
  1. NAPROXEN [Suspect]
  2. ISOPRENALINE HCL [Suspect]
     Indication: BRUGADA SYNDROME
     Dosage: IV
     Route: 042
  3. DIPHENHYDRAMINE HCL [Suspect]
     Dosage: PO
     Route: 048
  4. OMEPRAZOLE [Suspect]

REACTIONS (17)
  - BLOOD BICARBONATE DECREASED [None]
  - BLOOD PH DECREASED [None]
  - BRUGADA SYNDROME [None]
  - CARDIAC DISORDER [None]
  - COMA [None]
  - DRUG INEFFECTIVE [None]
  - ELECTROLYTE IMBALANCE [None]
  - HEART RATE INCREASED [None]
  - HYPERKALAEMIA [None]
  - HYPOTENSION [None]
  - INJURY [None]
  - MULTIPLE DRUG OVERDOSE INTENTIONAL [None]
  - PCO2 INCREASED [None]
  - PO2 DECREASED [None]
  - RENAL FAILURE ACUTE [None]
  - RHABDOMYOLYSIS [None]
  - SUICIDE ATTEMPT [None]
